FAERS Safety Report 9784758 (Version 1)
Quarter: 2013Q4

REPORT INFORMATION
  Report Type: Spontaneous
  Country: JP (occurrence: JP)
  Receive Date: 20131227
  Receipt Date: 20131227
  Transmission Date: 20140711
  Serious: Yes (Death, Other)
  Sender: FDA-Public Use
  Company Number: JP-ROCHE-1323446

PATIENT
  Age: 81 Year
  Sex: Male
  Weight: 49 kg

DRUGS (2)
  1. AVASTIN [Suspect]
     Indication: GLIOBLASTOMA
     Route: 041
     Dates: start: 20131101
  2. CRAVIT [Suspect]
     Indication: URINARY TRACT INFECTION
     Route: 041
     Dates: start: 20131108, end: 20131110

REACTIONS (3)
  - Pancytopenia [Fatal]
  - Pneumonia [Fatal]
  - Urinary tract infection [Unknown]
